FAERS Safety Report 24537547 (Version 2)
Quarter: 2024Q4

REPORT INFORMATION
  Report Type: Report from Study
  Country: AR (occurrence: AR)
  Receive Date: 20241023
  Receipt Date: 20241112
  Transmission Date: 20250115
  Serious: No
  Sender: JOHNSON AND JOHNSON
  Company Number: AR-JNJFOC-20241024886

PATIENT
  Age: 64 Year
  Sex: Female
  Weight: 81 kg

DRUGS (1)
  1. SIMPONI [Suspect]
     Active Substance: GOLIMUMAB
     Indication: Rheumatoid arthritis
     Dosage: STRENGTH: 50.00 MG / 0.50 ML
     Route: 058
     Dates: start: 20240730

REACTIONS (6)
  - Application site pain [Unknown]
  - Application site pruritus [Unknown]
  - Accidental exposure to product [Unknown]
  - Abdominal distension [Unknown]
  - Device deployment issue [Unknown]
  - Product dose omission issue [Unknown]

NARRATIVE: CASE EVENT DATE: 20241004
